FAERS Safety Report 17276645 (Version 1)
Quarter: 2020Q1

REPORT INFORMATION
  Report Type: Spontaneous
  Country: US (occurrence: US)
  Receive Date: 20191226
  Receipt Date: 20191226
  Transmission Date: 20200409
  Serious: Yes (Hospitalization)
  Sender: FDA-Public Use
  Company Number: None

PATIENT
  Age: 60 Year
  Sex: Male
  Weight: 107 kg

DRUGS (2)
  1. CEFTRIAXONE 1 GRAM APOTEX [Suspect]
     Active Substance: CEFTRIAXONE
     Indication: UPPER RESPIRATORY TRACT INFECTION
     Route: 030
     Dates: start: 20191218, end: 20191218
  2. XYLOCAINE [Suspect]
     Active Substance: LIDOCAINE HYDROCHLORIDE
     Route: 030
     Dates: start: 20191216, end: 20191218

REACTIONS (4)
  - Vomiting [None]
  - Rash [None]
  - Pruritus [None]
  - Immediate post-injection reaction [None]

NARRATIVE: CASE EVENT DATE: 20191218
